FAERS Safety Report 16347856 (Version 1)
Quarter: 2019Q2

REPORT INFORMATION
  Report Type: Spontaneous
  Country: BG (occurrence: BG)
  Receive Date: 20190523
  Receipt Date: 20190523
  Transmission Date: 20190711
  Serious: Yes (Other)
  Sender: FDA-Public Use
  Company Number: BG-TAKEDA-2019TUS031768

PATIENT
  Age: 66 Year
  Sex: Male

DRUGS (1)
  1. ADENURIC [Suspect]
     Active Substance: FEBUXOSTAT
     Indication: GOUT
     Dosage: 60 MILLIGRAM
     Route: 048
     Dates: start: 20180801, end: 20190405

REACTIONS (7)
  - Arrhythmia [Recovered/Resolved]
  - Wrong technique in product usage process [Recovered/Resolved]
  - Extrasystoles [Recovered/Resolved]
  - Palpitations [Recovered/Resolved]
  - Asthenia [Recovered/Resolved]
  - Dyspnoea [Recovered/Resolved]
  - Off label use [Recovered/Resolved]

NARRATIVE: CASE EVENT DATE: 20180801
